FAERS Safety Report 14685863 (Version 4)
Quarter: 2019Q4

REPORT INFORMATION
  Report Type: Spontaneous
  Country: US (occurrence: US)
  Receive Date: 20180327
  Receipt Date: 20191122
  Transmission Date: 20200122
  Serious: Yes (Other)
  Sender: FDA-Public Use
  Company Number: US-ASTRAZENECA-2018SE36379

PATIENT
  Age: 18956 Day
  Sex: Female
  Weight: 68.5 kg

DRUGS (63)
  1. PROTONIX [Suspect]
     Active Substance: PANTOPRAZOLE SODIUM
     Indication: GASTROOESOPHAGEAL REFLUX DISEASE
     Route: 065
     Dates: start: 2006, end: 2016
  2. PROTONIX [Suspect]
     Active Substance: PANTOPRAZOLE SODIUM
     Indication: GASTROOESOPHAGEAL REFLUX DISEASE
     Dosage: GENERIC
     Route: 065
     Dates: start: 2014, end: 2015
  3. FERROUS SULFATE. [Concomitant]
     Active Substance: FERROUS SULFATE
     Indication: ANAEMIA
     Dates: start: 2017
  4. POTASSIUM CHLORIDE. [Concomitant]
     Active Substance: POTASSIUM CHLORIDE
     Indication: BLOOD POTASSIUM
     Dates: start: 2009
  5. GABAPENTIN. [Concomitant]
     Active Substance: GABAPENTIN
  6. OXYMORPHONE [Concomitant]
     Active Substance: OXYMORPHONE
  7. AMOXICILLIN. [Concomitant]
     Active Substance: AMOXICILLIN
  8. LIDOCAINE. [Concomitant]
     Active Substance: LIDOCAINE
  9. NEXIUM [Suspect]
     Active Substance: ESOMEPRAZOLE MAGNESIUM
     Indication: GASTROOESOPHAGEAL REFLUX DISEASE
     Route: 048
     Dates: start: 2006, end: 2016
  10. PROTONIX [Suspect]
     Active Substance: PANTOPRAZOLE SODIUM
     Indication: GASTROOESOPHAGEAL REFLUX DISEASE
     Dosage: GENERIC
     Route: 065
     Dates: start: 2013
  11. CRESTOR [Concomitant]
     Active Substance: ROSUVASTATIN CALCIUM
     Indication: BLOOD CHOLESTEROL INCREASED
     Dates: start: 2017
  12. METFORMIN [Concomitant]
     Active Substance: METFORMIN HYDROCHLORIDE
     Indication: DIABETES MELLITUS
     Route: 048
     Dates: start: 2013
  13. VENTOLIN [Concomitant]
     Active Substance: ALBUTEROL SULFATE
     Indication: CHRONIC OBSTRUCTIVE PULMONARY DISEASE
     Dates: start: 2008
  14. ALPRAZOLAM. [Concomitant]
     Active Substance: ALPRAZOLAM
     Route: 048
  15. DIAZEPAM. [Concomitant]
     Active Substance: DIAZEPAM
     Route: 048
  16. LISINOPRIL. [Concomitant]
     Active Substance: LISINOPRIL
  17. PRAVASTATIN. [Concomitant]
     Active Substance: PRAVASTATIN
  18. TRAZODONE [Concomitant]
     Active Substance: TRAZODONE HYDROCHLORIDE
  19. DICLOFENAC SODIUM. [Concomitant]
     Active Substance: DICLOFENAC SODIUM
  20. ROPINIROLE. [Concomitant]
     Active Substance: ROPINIROLE
  21. GABAPENTIN. [Concomitant]
     Active Substance: GABAPENTIN
  22. NEXIUM [Suspect]
     Active Substance: ESOMEPRAZOLE MAGNESIUM
     Indication: GASTROOESOPHAGEAL REFLUX DISEASE
     Route: 048
  23. PREVACID [Suspect]
     Active Substance: LANSOPRAZOLE
     Indication: GASTROOESOPHAGEAL REFLUX DISEASE
     Dosage: 30.0MG UNKNOWN
     Route: 065
     Dates: start: 2007, end: 2008
  24. GABAPENTIN. [Concomitant]
     Active Substance: GABAPENTIN
     Dates: start: 2010, end: 2012
  25. ZOLPIDEM [Concomitant]
     Active Substance: ZOLPIDEM TARTRATE
  26. LASIX [Concomitant]
     Active Substance: FUROSEMIDE
  27. NEURONTIN [Concomitant]
     Active Substance: GABAPENTIN
  28. LISINOPRIL. [Concomitant]
     Active Substance: LISINOPRIL
  29. FENTANYL. [Concomitant]
     Active Substance: FENTANYL
  30. RANITIDINE. [Concomitant]
     Active Substance: RANITIDINE
  31. PROTONIX [Suspect]
     Active Substance: PANTOPRAZOLE SODIUM
     Indication: GASTROOESOPHAGEAL REFLUX DISEASE
     Route: 048
     Dates: start: 2014, end: 2015
  32. IBUPROFEN. [Concomitant]
     Active Substance: IBUPROFEN
     Indication: PAIN
     Dates: start: 2015
  33. KEFLEX [Concomitant]
     Active Substance: CEPHALEXIN
  34. PREDNISONE. [Concomitant]
     Active Substance: PREDNISONE
  35. ACETAMINOPHEN. [Concomitant]
     Active Substance: ACETAMINOPHEN
  36. IBUPROFEN. [Concomitant]
     Active Substance: IBUPROFEN
  37. NEXIUM [Suspect]
     Active Substance: ESOMEPRAZOLE MAGNESIUM
     Indication: GASTROOESOPHAGEAL REFLUX DISEASE
     Route: 048
     Dates: start: 2014, end: 2017
  38. PREVACID [Suspect]
     Active Substance: LANSOPRAZOLE
     Indication: GASTROOESOPHAGEAL REFLUX DISEASE
     Route: 065
     Dates: start: 2006, end: 2016
  39. ZOLIDPEM, AMBEIN [Concomitant]
     Indication: INSOMNIA
     Dates: start: 2010
  40. XANAX [Concomitant]
     Active Substance: ALPRAZOLAM
  41. MELOXICAM. [Concomitant]
     Active Substance: MELOXICAM
  42. ONDANSETRON [Concomitant]
     Active Substance: ONDANSETRON
  43. OXYCODONE [Concomitant]
     Active Substance: OXYCODONE
  44. POTASSIUM CLAVULANATE [Concomitant]
     Active Substance: CLAVULANATE POTASSIUM
  45. FERROUS SULFATE. [Concomitant]
     Active Substance: FERROUS SULFATE
  46. ALBUTEROL SULFATE. [Concomitant]
     Active Substance: ALBUTEROL SULFATE
     Dosage: 0.083%
  47. CETIRIZINE HCL [Concomitant]
     Active Substance: CETIRIZINE HYDROCHLORIDE
  48. LINZESS [Concomitant]
     Active Substance: LINACLOTIDE
  49. MELOXICAM. [Concomitant]
     Active Substance: MELOXICAM
  50. OMEPRAZOLE. [Suspect]
     Active Substance: OMEPRAZOLE
     Indication: GASTROOESOPHAGEAL REFLUX DISEASE
     Dosage: GENERIC
     Route: 065
     Dates: start: 2006
  51. SYMBICORT [Concomitant]
     Active Substance: BUDESONIDE\FORMOTEROL FUMARATE DIHYDRATE
     Indication: CHRONIC OBSTRUCTIVE PULMONARY DISEASE
     Dates: start: 2013
  52. RANITIDINE. [Concomitant]
     Active Substance: RANITIDINE
     Dates: start: 2006, end: 2007
  53. DIFLUCAN [Concomitant]
     Active Substance: FLUCONAZOLE
  54. FUROSEMIDE. [Concomitant]
     Active Substance: FUROSEMIDE
  55. ZITHROMAX [Concomitant]
     Active Substance: AZITHROMYCIN DIHYDRATE
  56. AMITIZA [Concomitant]
     Active Substance: LUBIPROSTONE
  57. PERCOCET [Concomitant]
     Active Substance: ACETAMINOPHEN\OXYCODONE HYDROCHLORIDE
  58. ALPRAZOLAM. [Concomitant]
     Active Substance: ALPRAZOLAM
     Indication: ANXIETY
     Dates: start: 2017
  59. ONDANESTRON [Concomitant]
     Indication: NAUSEA
     Dates: start: 2015
  60. CYANOCOBALAMIN. [Concomitant]
     Active Substance: CYANOCOBALAMIN
  61. IBUPROFEN. [Concomitant]
     Active Substance: IBUPROFEN
  62. ALPRAZOLAM. [Concomitant]
     Active Substance: ALPRAZOLAM
  63. TUMS [Concomitant]
     Active Substance: CALCIUM CARBONATE

REACTIONS (4)
  - Acute kidney injury [Not Recovered/Not Resolved]
  - Renal failure [Unknown]
  - End stage renal disease [Unknown]
  - Chronic kidney disease [Not Recovered/Not Resolved]

NARRATIVE: CASE EVENT DATE: 20150611
